FAERS Safety Report 6186796-X (Version None)
Quarter: 2009Q2

REPORT INFORMATION
  Report Type: 
  Country: None (occurrence: None)
  Receive Date: 20090512
  Receipt Date: 20080819
  Transmission Date: 20091009
  Serious: Yes (Death, Other)
  Sender: FDA-Public Use
  Company Number: RU-BAYER-200824804GPV

PATIENT

DRUGS (4)
  1. FLUDARABINE PHOSPHATE [Suspect]
     Indication: STEM CELL TRANSPLANT
     Route: 065
  2. ANTI-THYMOCYTE GLOBULIN NOS [Suspect]
     Indication: STEM CELL TRANSPLANT
     Route: 065
  3. METHOTREXATE [Concomitant]
     Indication: PROPHYLAXIS AGAINST GRAFT VERSUS HOST DISEASE
     Route: 065
  4. CYCLOSPORINE [Concomitant]
     Indication: PROPHYLAXIS AGAINST GRAFT VERSUS HOST DISEASE
     Route: 065

REACTIONS (5)
  - ACUTE GRAFT VERSUS HOST DISEASE [None]
  - CHRONIC GRAFT VERSUS HOST DISEASE [None]
  - DRUG TOXICITY [None]
  - INFECTION [None]
  - SEPSIS [None]
